FAERS Safety Report 9838000 (Version 1)
Quarter: 2013Q4

REPORT INFORMATION
  Report Type: Spontaneous
  Country: US (occurrence: None)
  Receive Date: 20131205
  Receipt Date: 20131205
  Transmission Date: 20140711
  Serious: Yes (Other)
  Sender: FDA-Public Use
  Company Number: 163-POMAL-13092114

PATIENT
  Age: 67 Year
  Sex: Female
  Weight: 58 kg

DRUGS (19)
  1. POMALYST (POMALIDOMIDE) (4 MILLIGRAM, CAPSULES) [Suspect]
     Indication: PLASMA CELL MYELOMA
     Dosage: 4 MG, 21 IN 28 D, PO
     Route: 048
     Dates: start: 20130719, end: 201309
  2. DECADRON (DEXAMETHASONE) (UNKNOWN) [Concomitant]
  3. SUMATRIPTAN (SUMATRIPTAN) (TABLETS) [Concomitant]
  4. CYMBALTA (DULOXETINE HYDROCHLORIDE) (TABLETS) [Concomitant]
  5. AMBIEN (ZOLPIDEM TARTRATE) (TABLETS) [Concomitant]
  6. MIRALAX (MACROGOL) (UNKNOWN) [Concomitant]
  7. OXYBUTYNIN CHLORIDE (OXYBUTYNIN HYDROCHLORIDE) (TABLETS) [Concomitant]
  8. ONDANSETRON HCL (ONDANSETRON HYDROCHLORIDE) (TABLETS) [Concomitant]
  9. LIDOCAINE-PRILOCAINE (EMLA) (CREAM) [Concomitant]
  10. MECLIZINE (MECLOZINE) (TABLETS) [Concomitant]
  11. NEXIUM (ESOMEPRAZOLE) (CAPSULES) [Concomitant]
  12. VALACYCLOVIR HYDROCHLORIDE (VALACICLOVIR HYDROCHLORIDE) (TABLETS) [Concomitant]
  13. ALBUTEROL SULFATE HFA (SALBUTAMOL) (AEROSOL FOR INHALATION) [Concomitant]
  14. CHLOECALCIFEROL (COLECALCIFEROL) (CAPSULES) [Concomitant]
  15. BITAMIN B12 (CYANOCOBALAMIN) (TABLETS) [Concomitant]
  16. NYSTATIN (NYSTATIN) (SUSPENSION) [Concomitant]
  17. COREG (CARVEDILOL) (TABLETS) [Concomitant]
  18. PLAVIX (CLOPIDOGREL SULFATE) (TABLETS) [Concomitant]
  19. TUMS (CALCIUM CARBONATE) (UNKNOWN) [Concomitant]

REACTIONS (2)
  - Neutrophil count decreased [None]
  - White blood cell count decreased [None]
